FAERS Safety Report 16733471 (Version 1)
Quarter: 2019Q3

REPORT INFORMATION
  Report Type: Report from Study
  Country: DE (occurrence: DE)
  Receive Date: 20190823
  Receipt Date: 20190823
  Transmission Date: 20191005
  Serious: Yes (Other)
  Sender: FDA-Public Use
  Company Number: DE-TEVA-2019-DE-1095448

PATIENT
  Age: 55 Year
  Sex: Female
  Weight: 66 kg

DRUGS (5)
  1. CAPECITABINE. [Suspect]
     Active Substance: CAPECITABINE
     Indication: BREAST CANCER
     Dosage: 3000 MG PER DAY
     Route: 048
     Dates: start: 20150917
  2. CAPECITABINE. [Suspect]
     Active Substance: CAPECITABINE
     Dosage: DAILY DOSE: 3000 MG MILLIGRAM(S) EVERY DAY
     Route: 048
     Dates: start: 20140829, end: 20151119
  3. BEVACIZUMAB. [Suspect]
     Active Substance: BEVACIZUMAB
     Indication: BREAST CANCER
     Dosage: DAILY DOSE: 1020 MG MILLIGRAM(S) EVERY 3 WEEK
     Route: 042
     Dates: start: 20141031, end: 20151119
  4. BEVACIZUMAB. [Suspect]
     Active Substance: BEVACIZUMAB
     Dosage: 1011.15 MG EVERY 3 WEEKS
     Route: 042
     Dates: start: 20150917
  5. AMLODIPINE [Concomitant]
     Active Substance: AMLODIPINE BESYLATE
     Indication: HYPERTENSION
     Dosage: 5 MG PER DAY
     Route: 048
     Dates: start: 20150106, end: 20160405

REACTIONS (1)
  - Dental operation [Recovered/Resolved]

NARRATIVE: CASE EVENT DATE: 20151019
